FAERS Safety Report 9202581 (Version 1)
Quarter: 2013Q2

REPORT INFORMATION
  Report Type: Spontaneous
  Country: HK (occurrence: HK)
  Receive Date: 20130401
  Receipt Date: 20130401
  Transmission Date: 20140414
  Serious: Yes (Hospitalization, Other)
  Sender: FDA-Public Use
  Company Number: HK-JHP PHARMACEUTICALS, LLC-JHP201300172

PATIENT
  Age: 26 Year
  Sex: Male

DRUGS (1)
  1. KETALAR [Suspect]
     Indication: DRUG ABUSE
     Route: 055

REACTIONS (8)
  - Pneumomediastinum [Recovered/Resolved]
  - Emphysema [Recovered/Resolved]
  - Pneumorrhachis [Recovered/Resolved]
  - Renal failure chronic [Recovered/Resolved]
  - Liver function test abnormal [Unknown]
  - Nephropathy [Unknown]
  - Bladder obstruction [Recovered/Resolved]
  - Loss of consciousness [Recovered/Resolved]
